FAERS Safety Report 5846379-5 (Version None)
Quarter: 2008Q3

REPORT INFORMATION
  Report Type: 
  Country: None (occurrence: None)
  Receive Date: 20080815
  Receipt Date: 20080808
  Transmission Date: 20090109
  Serious: Yes (Death)
  Sender: FDA-Public Use
  Company Number: JP-AMGEN-US300865

PATIENT
  Sex: Female

DRUGS (2)
  1. ENBREL [Suspect]
     Indication: RHEUMATOID ARTHRITIS
     Dosage: PRE-FILLED SYRINGE, DOSE AND FREQUENCY UNKNOWN
     Route: 058
     Dates: end: 20080731
  2. RHEUMATREX [Concomitant]

REACTIONS (1)
  - COMPLETED SUICIDE [None]
